FAERS Safety Report 15089784 (Version 1)
Quarter: 2018Q2

REPORT INFORMATION
  Report Type: Spontaneous
  Country: US (occurrence: US)
  Receive Date: 20180629
  Receipt Date: 20180629
  Transmission Date: 20180711
  Serious: Yes (Death, Hospitalization)
  Sender: FDA-Public Use
  Company Number: US-BAYER-2016-204342

PATIENT
  Age: 79 Year
  Sex: Female

DRUGS (2)
  1. BAYER ASPIRIN [Suspect]
     Active Substance: ASPIRIN
     Indication: ACUTE MYOCARDIAL INFARCTION
     Dosage: 325 MG, UNK
     Route: 048
  2. XARELTO [Suspect]
     Active Substance: RIVAROXABAN
     Indication: PULMONARY EMBOLISM
     Dosage: 15 MG, UNK
     Route: 048
     Dates: start: 20160522, end: 20160523

REACTIONS (2)
  - Retroperitoneal haemorrhage [Fatal]
  - Hypovolaemic shock [Fatal]

NARRATIVE: CASE EVENT DATE: 201605
